FAERS Safety Report 17017071 (Version 1)
Quarter: 2019Q4

REPORT INFORMATION
  Report Type: Spontaneous
  Country: US (occurrence: US)
  Receive Date: 20191004
  Receipt Date: 20191004
  Transmission Date: 20200122
  Serious: Yes (Hospitalization)
  Sender: FDA-Public Use
  Company Number: None

PATIENT
  Age: 9 Year
  Sex: Male

DRUGS (14)
  1. SULFATRIM [Concomitant]
     Active Substance: SULFAMETHOXAZOLE\TRIMETHOPRIM
  2. ALBUTEROL. [Concomitant]
     Active Substance: ALBUTEROL
  3. AMOXICILLIN. [Concomitant]
     Active Substance: AMOXICILLIN
  4. AQUADEK [Concomitant]
  5. CEPHALEXIN. [Concomitant]
     Active Substance: CEPHALEXIN
  6. OMEPRAZOLE. [Concomitant]
     Active Substance: OMEPRAZOLE
  7. PULMOZYME [Concomitant]
     Active Substance: DORNASE ALFA
  8. CREON [Concomitant]
     Active Substance: PANCRELIPASE AMYLASE\PANCRELIPASE LIPASE\PANCRELIPASE PROTEASE
  9. PROAIR HFA [Concomitant]
     Active Substance: ALBUTEROL SULFATE
  10. TOBRAMYCIN. [Concomitant]
     Active Substance: TOBRAMYCIN
  11. LEVOFLOXACIN. [Concomitant]
     Active Substance: LEVOFLOXACIN
  12. PREDNISOLONE. [Concomitant]
     Active Substance: PREDNISOLONE
  13. SOD CHL 7% NEBULIZER SOLUTIN [Suspect]
     Active Substance: SODIUM CHLORIDE
     Indication: CYSTIC FIBROSIS
     Route: 055
     Dates: start: 20140131
  14. LACTOBACILLUS ACIDOPHILUS\LACTOBACILLUS BULGARICUS [Concomitant]
     Active Substance: LACTOBACILLUS ACIDOPHILUS\LACTOBACILLUS DELBRUECKII SUBSP. BULGARICUS

REACTIONS (1)
  - Cystic fibrosis [None]

NARRATIVE: CASE EVENT DATE: 20190905
